FAERS Safety Report 7776128-5 (Version None)
Quarter: 2011Q3

REPORT INFORMATION
  Report Type: 
  Country: None (occurrence: None)
  Receive Date: 20110925
  Receipt Date: 20110222
  Transmission Date: 20111222
  Serious: No
  Sender: FDA-Public Use
  Company Number: PHHY2011DE29133

PATIENT
  Sex: Male
  Weight: 80 kg

DRUGS (8)
  1. ACE INHIBITOR NOS [Concomitant]
     Dosage: UNK UKN, UNK
     Route: 048
  2. TELMISARTAN [Concomitant]
     Indication: HYPERTENSION
     Dosage: 1 DF, QD (40/12.5 MG)
     Dates: start: 20080506
  3. THIENOPYRIDINE [Concomitant]
     Dosage: UNK UKN, UNK
     Dates: start: 20100101
  4. FUROSEMIDE [Concomitant]
     Indication: HYPERTENSION
     Dosage: 40 MG, PER DAY
     Route: 048
     Dates: start: 20051101
  5. SIMVASTATIN [Concomitant]
     Indication: HYPERCHOLESTEROLAEMIA
     Dosage: 20 MG, PER DAY
     Route: 048
     Dates: start: 20051101
  6. METOPROLOL SUCCINATE [Concomitant]
     Indication: HYPERTENSION
     Dosage: 190 MG, PE3R DAY
     Route: 048
     Dates: start: 20051101
  7. RASILEZ [Suspect]
     Indication: HYPERTENSION
     Dosage: 150 MG, UNK
     Route: 048
     Dates: start: 20090108
  8. NSAID'S [Concomitant]
     Dosage: UNK UKN, UNK

REACTIONS (1)
  - NO ADVERSE EVENT [None]
